FAERS Safety Report 6639826-2 (Version None)
Quarter: 2010Q1

REPORT INFORMATION
  Report Type: 
  Country: None (occurrence: None)
  Receive Date: 20100315
  Receipt Date: 20100303
  Transmission Date: 20100710
  Serious: Yes (Life-Threatening, Hospitalization, Other)
  Sender: FDA-Public Use
  Company Number: 1000011975

PATIENT
  Age: 83 Year
  Sex: Female
  Weight: 96 kg

DRUGS (17)
  1. CITALOPRAM (CITALOPRAM HYDROBROMIDE) (20 MILLIGRAM, TABLETS) [Suspect]
     Dosage: 20 MG (20 MG,  1 IN  1 D),ORAL
     Route: 048
     Dates: start: 20090717, end: 20090816
  2. HALDOL [Suspect]
     Dosage: 1 MG (0.5 MG, 2 IN 1 D), ORAL
     Route: 048
     Dates: start: 20090808, end: 20090813
  3. PANTOZOL(TABLETS) [Suspect]
     Dosage: ORAL
     Route: 048
     Dates: start: 20090726, end: 20090730
  4. UNACID (375 MILLIGRAM, TABLETS) [Suspect]
     Dosage: 750 MG (750 MG, 1 IN 1 D), ORAL
     Route: 048
     Dates: start: 20090728, end: 20090728
  5. UNACID (375 MILLIGRAM, TABLETS) [Suspect]
     Dosage: 1500 MG (750 MG, 2 IN 1 D), ORAL
     Route: 048
     Dates: start: 20090729, end: 20090804
  6. CEFTRIAXON [Suspect]
     Dosage: 4000 MG (4000 MG, 1 IN 1 D),INTRAVENOUS (NOT OTHERWISE SPECIFIED
     Dates: start: 20090803, end: 20090809
  7. METAMIZOLE (DROPS) [Suspect]
     Dosage: ORAL
     Route: 048
     Dates: start: 20090508, end: 20090616
  8. METAMIZOLE (DROPS) [Suspect]
     Dosage: ORAL
     Route: 048
     Dates: start: 20090618, end: 20090721
  9. METAMIZOLE (DROPS) [Suspect]
     Dosage: ORAL
     Route: 048
     Dates: start: 20090723, end: 20090801
  10. METAMIZOLE (DROPS) [Suspect]
     Dosage: ORAL
     Route: 048
     Dates: start: 20090803, end: 20090815
  11. TAZOBAC (4.5 MILLIGRAM) [Suspect]
     Dosage: 4.5 MG (4.5 MG,1 IN 1 D), INTRAVENOUS (NOT OTHERWISE SPECIFIED)
     Route: 042
     Dates: start: 20090803, end: 20090803
  12. TAZOBAC (4.5 MILLIGRAM) [Suspect]
     Dosage: 13.5 MG (4.5 MG, 3 IN 1 D), INTRAVENOUS (NOT OTHERWISE SPECIFIED)
     Route: 042
     Dates: start: 20090804, end: 20090809
  13. TURIXIN (OINTMENT) [Concomitant]
  14. DURAGESIC-100 [Concomitant]
  15. FUROSEMIDE (40 MILLIGRAM) [Concomitant]
  16. ENOXAPARIN SODIUM [Concomitant]
  17. METOHEXAL (47.5 MILLIGRAM, TABLETS) [Concomitant]

REACTIONS (6)
  - ATRIAL FIBRILLATION [None]
  - BEDRIDDEN [None]
  - CEREBRAL INFARCTION [None]
  - ELECTROCARDIOGRAM ST SEGMENT DEPRESSION [None]
  - INFECTION [None]
  - PANCYTOPENIA [None]
